FAERS Safety Report 5360674-8 (Version None)
Quarter: 2007Q2

REPORT INFORMATION
  Report Type: 
  Country: None (occurrence: None)
  Receive Date: 20070618
  Receipt Date: 20070607
  Transmission Date: 20071010
  Serious: Yes (Hospitalization)
  Sender: FDA-Public Use
  Company Number: US-MERCK-0706USA02539

PATIENT
  Age: 65 Year
  Sex: Male

DRUGS (9)
  1. INDOCIN [Suspect]
     Route: 065
     Dates: end: 20060301
  2. LYRICA [Concomitant]
     Route: 065
  3. GLYBURIDE AND METFORMIN HYDROCHLORIDE [Concomitant]
     Route: 065
  4. DIGOXIN [Concomitant]
     Route: 065
  5. FLORINEF [Concomitant]
     Route: 065
  6. ZOCOR [Concomitant]
     Route: 065
  7. ASPIRIN [Concomitant]
     Route: 065
  8. CARBIDOPA AND LEVODOPA [Concomitant]
     Route: 065
  9. GABAPENTIN [Concomitant]
     Route: 065

REACTIONS (5)
  - ATRIAL NATRIURETIC PEPTIDE INCREASED [None]
  - CARDIAC FAILURE CONGESTIVE [None]
  - HYPERGLYCAEMIA [None]
  - HYPOKALAEMIA [None]
  - LEUKOCYTOSIS [None]
